FAERS Safety Report 21110789 (Version 1)
Quarter: 2022Q3

REPORT INFORMATION
  Report Type: Spontaneous
  Country: US (occurrence: None)
  Receive Date: 20220720
  Receipt Date: 20220720
  Transmission Date: 20221027
  Serious: Yes (Other)
  Sender: FDA-Public Use
  Company Number: None

PATIENT
  Age: 38 Year
  Sex: Male
  Weight: 101 kg

DRUGS (5)
  1. HEMLIBRA [Suspect]
     Active Substance: EMICIZUMAB-KXWH
     Indication: Factor VIII deficiency
     Dosage: OTHER FREQUENCY : WEEKLY;?
     Route: 058
     Dates: start: 20220624, end: 20220630
  2. ADVATE [Concomitant]
     Active Substance: ANTIHEMOPHILIC FACTOR, HUMAN RECOMBINANT
  3. GABAPENTIN [Concomitant]
     Active Substance: GABAPENTIN
  4. METHADONE [Concomitant]
     Active Substance: METHADONE HYDROCHLORIDE
  5. MIRTAZAPINE [Concomitant]
     Active Substance: MIRTAZAPINE

REACTIONS (4)
  - Chest pain [None]
  - Dyspnoea [None]
  - Palpitations [None]
  - Palpitations [None]

NARRATIVE: CASE EVENT DATE: 20220702
